FAERS Safety Report 22592717 (Version 1)
Quarter: 2023Q2

REPORT INFORMATION
  Report Type: Spontaneous
  Country: JP (occurrence: JP)
  Receive Date: 20230613
  Receipt Date: 20230613
  Transmission Date: 20230722
  Serious: Yes (Other)
  Sender: FDA-Public Use
  Company Number: JP-BEH-2023159507

PATIENT
  Age: 11 Year
  Sex: Male

DRUGS (1)
  1. PRIVIGEN [Suspect]
     Active Substance: HUMAN IMMUNOGLOBULIN G
     Dosage: 4 MILLILITER
     Route: 041

REACTIONS (4)
  - Anaphylactic reaction [Unknown]
  - Headache [Unknown]
  - Malaise [Unknown]
  - Conjunctival hyperaemia [Unknown]
